FAERS Safety Report 16161791 (Version 2)
Quarter: 2019Q2

REPORT INFORMATION
  Report Type: Spontaneous
  Country: US (occurrence: US)
  Receive Date: 20190405
  Receipt Date: 20190417
  Transmission Date: 20190711
  Serious: No
  Sender: FDA-Public Use
  Company Number: US-PFIZER INC-2019140563

PATIENT
  Age: 68 Year
  Sex: Female

DRUGS (1)
  1. LORATADINE. [Suspect]
     Active Substance: LORATADINE
     Dosage: UNK

REACTIONS (3)
  - Vertigo [Unknown]
  - Drug hypersensitivity [Unknown]
  - Vomiting [Unknown]
